FAERS Safety Report 7403037-3 (Version None)
Quarter: 2011Q2

REPORT INFORMATION
  Report Type: 
  Country: None (occurrence: None)
  Receive Date: 20110408
  Receipt Date: 20110215
  Transmission Date: 20111010
  Serious: No
  Sender: FDA-Public Use
  Company Number: US-NOVEN-11US001793

PATIENT
  Sex: Female

DRUGS (1)
  1. FENTANYL [Suspect]
     Indication: PAIN
     Dosage: 75 UG, Q72H
     Route: 062

REACTIONS (10)
  - INSOMNIA [None]
  - PALLOR [None]
  - MALAISE [None]
  - NAUSEA [None]
  - HYPERSOMNIA [None]
  - FEAR [None]
  - HYPERHIDROSIS [None]
  - DECREASED APPETITE [None]
  - DRUG EFFECT INCREASED [None]
  - DYSPNOEA [None]
